FAERS Safety Report 16261745 (Version 9)
Quarter: 2021Q4

REPORT INFORMATION
  Report Type: Spontaneous
  Country: US (occurrence: US)
  Receive Date: 20190501
  Receipt Date: 20211011
  Transmission Date: 20220303
  Serious: Yes (Hospitalization, Other)
  Sender: FDA-Public Use
  Company Number: US-PFIZER INC-2016116144

PATIENT
  Age: 77 Year
  Sex: Female
  Weight: 98.87 kg

DRUGS (3)
  1. LYRICA [Suspect]
     Active Substance: PREGABALIN
     Indication: Pain in extremity
     Dosage: 150 MG THRICE DAILY
     Route: 048
     Dates: start: 2000
  2. LYRICA [Suspect]
     Active Substance: PREGABALIN
     Indication: Neuropathy peripheral
     Dosage: 150 MG THRICE DAILY
     Route: 048
     Dates: start: 2000
  3. LYRICA [Suspect]
     Active Substance: PREGABALIN
     Indication: Nerve injury

REACTIONS (9)
  - Pneumonia [Unknown]
  - Illness [Unknown]
  - Hemiplegia [Not Recovered/Not Resolved]
  - Joint dislocation [Unknown]
  - Limb discomfort [Unknown]
  - Limb deformity [Unknown]
  - Insomnia [Unknown]
  - Speech disorder [Unknown]
  - Chronic obstructive pulmonary disease [Unknown]

NARRATIVE: CASE EVENT DATE: 20000101
